FAERS Safety Report 21363876 (Version 1)
Quarter: 2022Q3

REPORT INFORMATION
  Report Type: Spontaneous
  Country: US (occurrence: None)
  Receive Date: 20220921
  Receipt Date: 20220921
  Transmission Date: 20221027
  Serious: Yes (Disabling)
  Sender: FDA-Public Use
  Company Number: None

PATIENT
  Age: 34 Year
  Sex: Male
  Weight: 72 kg

DRUGS (1)
  1. LEVOFLOXACIN [Suspect]
     Active Substance: LEVOFLOXACIN
     Indication: Epididymitis
     Dosage: FREQUENCY : DAILY;?
     Route: 048
     Dates: start: 20220317, end: 20220331

REACTIONS (2)
  - Tendon pain [None]
  - Muscular weakness [None]

NARRATIVE: CASE EVENT DATE: 20220404
